FAERS Safety Report 7290272-0 (Version None)
Quarter: 2011Q1

REPORT INFORMATION
  Report Type: 
  Country: None (occurrence: None)
  Receive Date: 20110214
  Receipt Date: 20101109
  Transmission Date: 20110831
  Serious: No
  Sender: FDA-Public Use
  Company Number: US-BAYER-2010-006919

PATIENT
  Sex: Female

DRUGS (1)
  1. MIRENA [Suspect]
     Indication: MENORRHAGIA
     Dosage: UNK
     Route: 015
     Dates: start: 20101101, end: 20101101

REACTIONS (1)
  - DEVICE EXPULSION [None]
